FAERS Safety Report 9924717 (Version 1)
Quarter: 2014Q1

REPORT INFORMATION
  Report Type: Spontaneous
  Country: US (occurrence: None)
  Receive Date: 20140224
  Receipt Date: 20140224
  Transmission Date: 20141002
  Serious: Yes (Life-Threatening, Hospitalization, Disabling, Other)
  Sender: FDA-Public Use
  Company Number: None

PATIENT
  Age: 52 Year
  Sex: Male
  Weight: 147.42 kg

DRUGS (1)
  1. AXIRON, 30 MG, LILLY [Suspect]
     Indication: BLOOD TESTOSTERONE DECREASED
     Dosage: APPLIED TO A SURFACE, USUALLY THE SKIN
     Dates: start: 20130816, end: 20130922

REACTIONS (3)
  - Chest pain [None]
  - Myocardial infarction [None]
  - Pulmonary embolism [None]
